FAERS Safety Report 4878549-7 (Version None)
Quarter: 2006Q1

REPORT INFORMATION
  Report Type: 
  Country: None (occurrence: None)
  Receive Date: 20060110
  Receipt Date: 20060110
  Transmission Date: 20060701
  Serious: Yes (Death)
  Sender: FDA-Public Use
  Company Number: None

PATIENT
  Age: 71 Year
  Sex: Female
  Weight: 65.7716 kg

DRUGS (1)
  1. TAXOL [Suspect]

REACTIONS (2)
  - CARDIOGENIC SHOCK [None]
  - THROMBOSIS IN DEVICE [None]
